FAERS Safety Report 21753640 (Version 1)
Quarter: 2022Q4

REPORT INFORMATION
  Report Type: Spontaneous
  Country: US (occurrence: US)
  Receive Date: 20221220
  Receipt Date: 20221220
  Transmission Date: 20230113
  Serious: No
  Sender: FDA-Public Use
  Company Number: US-BRISTOL-MYERS SQUIBB COMPANY-2022-155374

PATIENT
  Age: 15 Year
  Sex: Female

DRUGS (2)
  1. THALOMID [Suspect]
     Active Substance: THALIDOMIDE
     Indication: Plasma cell myeloma
     Route: 048
     Dates: start: 202212
  2. THALOMID [Suspect]
     Active Substance: THALIDOMIDE
     Indication: Urea cycle disorder
     Route: 048
     Dates: start: 202212

REACTIONS (2)
  - Fatigue [Unknown]
  - Decreased appetite [Unknown]
